FAERS Safety Report 5709645-X (Version None)
Quarter: 2008Q2

REPORT INFORMATION
  Report Type: 
  Country: None (occurrence: None)
  Receive Date: 20080418
  Receipt Date: 20080416
  Transmission Date: 20081010
  Serious: Yes (Other)
  Sender: FDA-Public Use
  Company Number: B0516843A

PATIENT
  Age: 61 Year
  Sex: Male

DRUGS (1)
  1. REQUIP [Suspect]
     Indication: PARKINSON'S DISEASE

REACTIONS (3)
  - INSOMNIA [None]
  - PARKINSON'S DISEASE [None]
  - VERTIGO [None]
